FAERS Safety Report 8047198-4 (Version None)
Quarter: 2012Q1

REPORT INFORMATION
  Report Type: 
  Country: None (occurrence: None)
  Receive Date: 20120116
  Receipt Date: 20120109
  Transmission Date: 20120608
  Serious: Yes (Hospitalization)
  Sender: FDA-Public Use
  Company Number: US-BAYER-2012-004170

PATIENT
  Age: 27 Year
  Sex: Female
  Weight: 85.714 kg

DRUGS (5)
  1. YAZ [Suspect]
     Indication: PREMENSTRUAL SYNDROME
     Dosage: UNK
     Route: 048
     Dates: start: 20061001, end: 20061101
  2. YAZ [Suspect]
     Indication: MENORRHAGIA
  3. YAZ [Suspect]
     Indication: MIGRAINE
  4. YAZ [Suspect]
     Indication: DYSMENORRHOEA
  5. EXCEDRIN (MIGRAINE) [Concomitant]

REACTIONS (9)
  - CHOLECYSTITIS [None]
  - FLATULENCE [None]
  - MEDICAL DIET [None]
  - CONSTIPATION [None]
  - ABDOMINAL PAIN [None]
  - ABDOMINAL DISTENSION [None]
  - ANXIETY [None]
  - DYSPEPSIA [None]
  - DIARRHOEA [None]
